FAERS Safety Report 11647883 (Version 1)
Quarter: 2015Q4

REPORT INFORMATION
  Report Type: Spontaneous
  Country: US (occurrence: None)
  Receive Date: 20151020
  Receipt Date: 20151020
  Transmission Date: 20160304
  Serious: Yes (Life-Threatening, Hospitalization)
  Sender: FDA-Public Use
  Company Number: None

PATIENT
  Age: 76 Year
  Sex: Male
  Weight: 75.4 kg

DRUGS (1)
  1. FERRIC NA GLUCONATE [Suspect]
     Active Substance: SODIUM FERRIC GLUCONATE COMPLEX
     Indication: IRON DEFICIENCY ANAEMIA
     Route: 042
     Dates: start: 20151016, end: 20151016

REACTIONS (7)
  - Presyncope [None]
  - Abdominal pain [None]
  - Bradycardia [None]
  - Vomiting [None]
  - Hypotension [None]
  - Nausea [None]
  - Anaphylactic reaction [None]

NARRATIVE: CASE EVENT DATE: 20151016
